FAERS Safety Report 8417013-5 (Version None)
Quarter: 2012Q2

REPORT INFORMATION
  Report Type: 
  Country: None (occurrence: None)
  Receive Date: 20120606
  Receipt Date: 20120605
  Transmission Date: 20120825
  Serious: No
  Sender: FDA-Public Use
  Company Number: US-BAYER-2012-055927

PATIENT
  Sex: Female

DRUGS (1)
  1. MIRENA [Suspect]
     Route: 015

REACTIONS (1)
  - DEVICE DIFFICULT TO USE [None]
